FAERS Safety Report 4365779-6 (Version None)
Quarter: 2004Q2

REPORT INFORMATION
  Report Type: 
  Country: None (occurrence: None)
  Receive Date: 20040520
  Receipt Date: 20040510
  Transmission Date: 20050107
  Serious: Yes (Hospitalization)
  Sender: FDA-Public Use
  Company Number: 2004PK00846

PATIENT
  Age: 81 Year
  Sex: Female

DRUGS (12)
  1. BELOC ZOK [Suspect]
     Indication: ATRIAL FIBRILLATION
     Dosage: 47.5 MG DAILY PO
     Route: 048
     Dates: start: 20031008, end: 20031104
  2. BELOC ZOK [Suspect]
     Indication: TACHYARRHYTHMIA
     Dosage: 47.5 MG DAILY PO
     Route: 048
     Dates: start: 20031008, end: 20031104
  3. DIGITOXIN TAB [Suspect]
     Indication: ATRIAL FIBRILLATION
     Dosage: 0.07 MG PO
     Route: 048
     Dates: start: 20000101, end: 20031008
  4. DIGITOXIN TAB [Suspect]
     Indication: TACHYARRHYTHMIA
     Dosage: 0.07 MG PO
     Route: 048
     Dates: start: 20000101, end: 20031008
  5. DIGITOXIN TAB [Suspect]
     Indication: ATRIAL FIBRILLATION
     Dosage: 0.07 MG DAILY PO
     Route: 048
     Dates: start: 20031009, end: 20031101
  6. DIGITOXIN TAB [Suspect]
     Indication: TACHYARRHYTHMIA
     Dosage: 0.07 MG DAILY PO
     Route: 048
     Dates: start: 20031009, end: 20031101
  7. GLIBENCLAMIDE ^RATIOPHARM^ [Suspect]
     Indication: DIABETES MELLITUS NON-INSULIN-DEPENDENT
     Dosage: 3.5 MG DAILY PO
     Route: 048
     Dates: start: 20000101, end: 20031101
  8. INSULIN ACTRAPHANE HUMAN [Suspect]
     Indication: DIABETES MELLITUS
     Dosage: IU DAILY SQ
     Route: 015
     Dates: start: 20010101, end: 20031101
  9. ENALAPRIL [Concomitant]
  10. IMBUN [Concomitant]
  11. OMEPRAZOLE [Concomitant]
  12. TORSEMIDE [Concomitant]

REACTIONS (5)
  - ATRIAL FIBRILLATION [None]
  - BRADYARRHYTHMIA [None]
  - BRADYCARDIA [None]
  - DRUG INTERACTION [None]
  - HYPOGLYCAEMIA [None]
